FAERS Safety Report 6980521-8 (Version None)
Quarter: 2010Q3

REPORT INFORMATION
  Report Type: 
  Country: None (occurrence: None)
  Receive Date: 20100914
  Receipt Date: 20100907
  Transmission Date: 20110219
  Serious: Yes (Death)
  Sender: FDA-Public Use
  Company Number: US-SANOFI-AVENTIS-2010SA054522

PATIENT
  Age: 87 Year
  Sex: Male

DRUGS (2)
  1. PLAVIX [Suspect]
     Route: 065
     Dates: end: 20090415
  2. ALL OTHER THERAPEUTIC PRODUCTS [Concomitant]

REACTIONS (1)
  - MYOCARDIAL INFARCTION [None]
